FAERS Safety Report 4566402-8 (Version None)
Quarter: 2005Q1

REPORT INFORMATION
  Report Type: 
  Country: None (occurrence: None)
  Receive Date: 20050201
  Receipt Date: 20041019
  Transmission Date: 20050727
  Serious: Yes (Other)
  Sender: FDA-Public Use
  Company Number: 200418039US

PATIENT
  Sex: Female

DRUGS (3)
  1. CARAC [Suspect]
     Indication: SQUAMOUS CELL CARCINOMA
     Dosage: DOSE: UNK
     Route: 061
     Dates: start: 20040701, end: 20040801
  2. SYNTHROID [Concomitant]
  3. BUTALBITAL [Concomitant]

REACTIONS (7)
  - ANAEMIA [None]
  - ANOREXIA [None]
  - BRONCHITIS [None]
  - COLITIS [None]
  - FATIGUE [None]
  - GASTRIC DISORDER [None]
  - WEIGHT DECREASED [None]
